FAERS Safety Report 15399837 (Version 2)
Quarter: 2018Q3

REPORT INFORMATION
  Report Type: Spontaneous
  Country: FI (occurrence: FI)
  Receive Date: 20180918
  Receipt Date: 20180920
  Transmission Date: 20181010
  Serious: Yes (Hospitalization, Other)
  Sender: FDA-Public Use
  Company Number: FI-ABBVIE-09P-055-0591193-00

PATIENT
  Age: 9 Year
  Sex: Male
  Weight: 36.4 kg

DRUGS (14)
  1. MYCOPHENOLIC ACID. [Concomitant]
     Active Substance: MYCOPHENOLIC ACID
     Indication: PRODUCT USED FOR UNKNOWN INDICATION
  2. FOLVITE [Concomitant]
     Active Substance: FOLIC ACID
     Indication: ADVERSE DRUG REACTION
     Dosage: 3 MG ONE TIME A WEEK
     Route: 048
     Dates: start: 2002
  3. MULTI?TABS [Concomitant]
     Indication: PRODUCT USED FOR UNKNOWN INDICATION
     Route: 048
  4. CICLOSPORINE [Concomitant]
     Active Substance: CYCLOSPORINE
     Indication: PRODUCT USED FOR UNKNOWN INDICATION
  5. GOLIMUMAB [Suspect]
     Active Substance: GOLIMUMAB
     Indication: PRODUCT USED FOR UNKNOWN INDICATION
     Route: 065
  6. METHOTREXATE. [Suspect]
     Active Substance: METHOTREXATE
     Indication: JUVENILE IDIOPATHIC ARTHRITIS
     Route: 058
     Dates: start: 2002, end: 2014
  7. PREDNISOLONE. [Concomitant]
     Active Substance: PREDNISOLONE
     Indication: EYE DISORDER
     Dates: start: 20090430
  8. PREDNISOLONE. [Concomitant]
     Active Substance: PREDNISOLONE
  9. OFTAN DEXA [Concomitant]
     Indication: PRODUCT USED FOR UNKNOWN INDICATION
     Route: 047
     Dates: start: 2010
  10. HUMIRA [Suspect]
     Active Substance: ADALIMUMAB
     Indication: JUVENILE IDIOPATHIC ARTHRITIS
     Route: 058
     Dates: start: 20090612, end: 20090625
  11. HUMIRA [Suspect]
     Active Substance: ADALIMUMAB
     Indication: IRITIS
  12. FOLVITE [Concomitant]
     Active Substance: FOLIC ACID
     Indication: PROPHYLAXIS
  13. CALCICHEW D3 FORTE [Concomitant]
     Active Substance: CALCIUM\CHOLECALCIFEROL
     Indication: PRODUCT USED FOR UNKNOWN INDICATION
     Dosage: FOR YEARS
     Route: 048
  14. INFLIXIMAB [Concomitant]
     Active Substance: INFLIXIMAB
     Indication: PRODUCT USED FOR UNKNOWN INDICATION
     Dates: start: 2010, end: 2013

REACTIONS (12)
  - Diarrhoea [Unknown]
  - Headache [Unknown]
  - Chest discomfort [Unknown]
  - Pupillary deformity [Unknown]
  - Condition aggravated [Recovering/Resolving]
  - Glaucoma [Unknown]
  - Cataract [Unknown]
  - Iritis [Unknown]
  - Anaphylactic reaction [Recovered/Resolved]
  - Intraocular pressure test abnormal [Unknown]
  - Lacrimation increased [Unknown]
  - Nausea [Unknown]

NARRATIVE: CASE EVENT DATE: 20090612
